FAERS Safety Report 22603932 (Version 3)
Quarter: 2024Q3

REPORT INFORMATION
  Report Type: Report from Study
  Country: PE (occurrence: PE)
  Receive Date: 20230615
  Receipt Date: 20240716
  Transmission Date: 20241017
  Serious: Yes (Other)
  Sender: NOVARTIS
  Company Number: PE-002147023-NVSC2023PE091375

PATIENT
  Age: 45 Year
  Sex: Female

DRUGS (8)
  1. KISQALI [Suspect]
     Active Substance: RIBOCICLIB
     Indication: Breast cancer metastatic
     Dosage: 600 MG, QD (ONCE DAILY)
     Route: 048
     Dates: start: 20221101
  2. KISQALI [Suspect]
     Active Substance: RIBOCICLIB
     Dosage: 1 DOSAGE FORM, QD
     Route: 048
     Dates: start: 20221219
  3. KISQALI [Suspect]
     Active Substance: RIBOCICLIB
     Dosage: 3 DOSAGE FORM (AT NIGHT)
     Route: 065
     Dates: start: 202212
  4. KISQALI [Suspect]
     Active Substance: RIBOCICLIB
     Dosage: 2 DOSAGE FORM, QD
     Route: 048
  5. KISQALI [Suspect]
     Active Substance: RIBOCICLIB
     Dosage: 600 MG, QD (3 DOSAGE FORM)
     Route: 048
     Dates: start: 202302, end: 20230530
  6. KISQALI [Suspect]
     Active Substance: RIBOCICLIB
     Dosage: 600 MG, QD
     Route: 048
     Dates: start: 20230718, end: 20230724
  7. LETROZOLE [Suspect]
     Active Substance: LETROZOLE
     Indication: Product used for unknown indication
     Dosage: 250 MG
     Route: 065
  8. TAXOL [Concomitant]
     Active Substance: PACLITAXEL
     Indication: Product used for unknown indication
     Dosage: UNK
     Route: 065

REACTIONS (39)
  - Metastases to bone [Unknown]
  - Hepatitis [Unknown]
  - Malignant neoplasm progression [Unknown]
  - Breast cancer metastatic [Unknown]
  - Metastases to liver [Not Recovered/Not Resolved]
  - Neoplasm [Unknown]
  - Hepatomegaly [Unknown]
  - Urticaria [Unknown]
  - Spinal pain [Unknown]
  - Tumour marker abnormal [Unknown]
  - Decreased immune responsiveness [Unknown]
  - Drug intolerance [Unknown]
  - Tumour marker increased [Unknown]
  - Crying [Not Recovered/Not Resolved]
  - Sensitisation [Not Recovered/Not Resolved]
  - Irritability [Not Recovered/Not Resolved]
  - Visual impairment [Unknown]
  - Haemoglobin decreased [Unknown]
  - Influenza [Recovering/Resolving]
  - Dry skin [Recovering/Resolving]
  - Fatigue [Unknown]
  - Sinusitis [Unknown]
  - Discomfort [Unknown]
  - Headache [Unknown]
  - Malaise [Unknown]
  - Chest pain [Not Recovered/Not Resolved]
  - Back pain [Unknown]
  - Arthralgia [Unknown]
  - Abdominal pain upper [Unknown]
  - Vision blurred [Unknown]
  - Skin exfoliation [Unknown]
  - Burning sensation [Unknown]
  - Haematocrit decreased [Unknown]
  - White blood cell count decreased [Unknown]
  - Mean cell haemoglobin increased [Unknown]
  - Globulins increased [Unknown]
  - Blood lactate dehydrogenase increased [Unknown]
  - Carbohydrate antigen 15-3 increased [Unknown]
  - Blood alkaline phosphatase increased [Unknown]

NARRATIVE: CASE EVENT DATE: 20230530
